FAERS Safety Report 4941234-7 (Version None)
Quarter: 2006Q1

REPORT INFORMATION
  Report Type: 
  Country: None (occurrence: None)
  Receive Date: 20060313
  Receipt Date: 20060125
  Transmission Date: 20060701
  Serious: Yes (Hospitalization, Other)
  Sender: FDA-Public Use
  Company Number: PHBS2006JP01590

PATIENT
  Age: 72 Year
  Sex: Male

DRUGS (4)
  1. GLEEVEC [Suspect]
     Indication: BLAST CRISIS IN MYELOGENOUS LEUKAEMIA
     Dosage: 300 MG/DAY
     Route: 048
     Dates: start: 20050301, end: 20050321
  2. GLEEVEC [Suspect]
     Dosage: 200 MG/D
     Route: 048
     Dates: start: 20050322
  3. GLIMICRON [Suspect]
     Dosage: 40 MG/D
     Route: 048
     Dates: end: 20060205
  4. KINEDAK [Concomitant]
     Dosage: 150 MG/D
     Route: 048
     Dates: end: 20060205

REACTIONS (7)
  - BLADDER TAMPONADE [None]
  - CYSTITIS HAEMORRHAGIC [None]
  - HAEMATOCRIT DECREASED [None]
  - HAEMATURIA [None]
  - HAEMOGLOBIN DECREASED [None]
  - RED BLOOD CELL COUNT DECREASED [None]
  - URINARY BLADDER HAEMORRHAGE [None]
